FAERS Safety Report 16165366 (Version 1)
Quarter: 2019Q2

REPORT INFORMATION
  Report Type: Spontaneous
  Country: CZ (occurrence: CZ)
  Receive Date: 20190405
  Receipt Date: 20190405
  Transmission Date: 20190711
  Serious: Yes (Other)
  Sender: FDA-Public Use
  Company Number: PHHY2019CZ075730

PATIENT
  Age: 62 Year
  Sex: Female
  Weight: 72 kg

DRUGS (18)
  1. ZARZIO [Concomitant]
     Active Substance: FILGRASTIM
     Indication: NEUTROPENIA
     Dosage: 0.5 ML, UNK
     Route: 058
  2. DOXORUBICIN [Suspect]
     Active Substance: DOXORUBICIN
     Indication: TRIPLE NEGATIVE BREAST CANCER
     Dosage: 60 MG/M2, Q2W (14 DAY)
     Route: 042
     Dates: start: 20160309, end: 20160427
  3. NOVETRON [Concomitant]
     Indication: PROPHYLAXIS OF NAUSEA AND VOMITING
     Dosage: 8 MG, UNK
     Route: 048
  4. PACLITAXEL. [Suspect]
     Active Substance: PACLITAXEL
     Dosage: 70 MG/M2, UNK
     Route: 042
  5. CYCLOPHOSPHAMIDE. [Suspect]
     Active Substance: CYCLOPHOSPHAMIDE
     Indication: TRIPLE NEGATIVE BREAST CANCER
     Dosage: 600 MG/M2, Q2W (14 DAY)
     Route: 042
     Dates: start: 20160309, end: 20160427
  6. FORTECORTIN [Concomitant]
     Active Substance: DEXAMETHASONE
     Indication: PREMEDICATION
     Dosage: 4 MG, UNK
     Route: 048
  7. PACLITAXEL. [Suspect]
     Active Substance: PACLITAXEL
     Dosage: 60 MG/M2, UNK
     Route: 042
  8. CARBOPLATIN. [Suspect]
     Active Substance: CARBOPLATIN
     Indication: TRIPLE NEGATIVE BREAST CANCER
     Dosage: 1 OT, Q3W (21 DAY)
     Route: 042
     Dates: start: 20151125, end: 20160217
  9. SPERSALERG [Concomitant]
     Indication: HYPERSENSITIVITY
     Dosage: 1 GTT, UNK
     Route: 047
  10. DASSELTA [Concomitant]
     Active Substance: DESLORATADINE
     Indication: HYPERSENSITIVITY
     Dosage: UNK
     Route: 048
  11. DEXAMED [Concomitant]
     Indication: PREMEDICATION
     Dosage: 8 MG, UNK
     Route: 041
  12. DITHIADEN [Concomitant]
     Active Substance: BISULEPIN
     Indication: PREMEDICATION
     Dosage: 1 MG, UNK
     Route: 040
  13. ZOFRAN [Concomitant]
     Active Substance: ONDANSETRON HYDROCHLORIDE
     Indication: PREMEDICATION
     Dosage: 8 MG, UNK
     Route: 041
  14. SYMBICORT [Concomitant]
     Active Substance: BUDESONIDE\FORMOTEROL FUMARATE DIHYDRATE
     Indication: ASTHMA
     Dosage: UNK
     Route: 065
  15. ALOXI [Concomitant]
     Active Substance: PALONOSETRON HYDROCHLORIDE
     Indication: PREMEDICATION
     Dosage: 500 MG, UNK
     Route: 048
  16. PACLITAXEL. [Suspect]
     Active Substance: PACLITAXEL
     Indication: TRIPLE NEGATIVE BREAST CANCER
     Dosage: 80 MG/M2, UNK
     Route: 042
  17. RANITIDINE. [Concomitant]
     Active Substance: RANITIDINE
     Indication: PREMEDICATION
     Dosage: 50 MG, UNK
     Route: 041
  18. SOLIFENACIN ACTAVIS [Concomitant]
     Indication: POLLAKIURIA
     Dosage: 10 MG, QD
     Route: 048
     Dates: start: 20150401

REACTIONS (1)
  - Acute myeloid leukaemia [Recovered/Resolved]

NARRATIVE: CASE EVENT DATE: 20170227
